FAERS Safety Report 4956229-7 (Version None)
Quarter: 2006Q1

REPORT INFORMATION
  Report Type: 
  Country: None (occurrence: None)
  Receive Date: 20060323
  Receipt Date: 20060314
  Transmission Date: 20060701
  Serious: Yes (Life-Threatening, Other)
  Sender: FDA-Public Use
  Company Number: 219645

PATIENT
  Age: 59 Year
  Sex: Female

DRUGS (5)
  1. MABTHERA (RITUXIMAB)CONC FOR SOLUTION FOR INFUSION [Suspect]
     Dosage: 375 MG/M2, INTRAVENOUS
     Route: 042
     Dates: start: 20050601, end: 20050801
  2. CYCLOPHOSPHAMIDE [Concomitant]
  3. DOXORUBICIN HCL [Concomitant]
  4. VINCRISTINE [Concomitant]
  5. PREDNISONE [Concomitant]

REACTIONS (3)
  - CYTOMEGALOVIRUS ENTERITIS [None]
  - HYPERTHERMIA [None]
  - SUBILEUS [None]
